FAERS Safety Report 7358123-3 (Version None)
Quarter: 2011Q1

REPORT INFORMATION
  Report Type: 
  Country: None (occurrence: None)
  Receive Date: 20110314
  Receipt Date: 20110314
  Transmission Date: 20110831
  Serious: Yes (Hospitalization)
  Sender: FDA-Public Use
  Company Number: None

PATIENT
  Sex: Female

DRUGS (15)
  1. OXYGEN [Concomitant]
  2. PLAVIX [Concomitant]
  3. CIPROFLOXACIN [Concomitant]
  4. ZOCOR [Concomitant]
  5. CORTEF [Concomitant]
  6. PERCOCET [Concomitant]
  7. COUMADIN [Concomitant]
  8. OS-CAL D [Concomitant]
  9. NORDITROPIN [Suspect]
     Dosage: 0.7MG QID SQ
  10. COLACE [Concomitant]
  11. SYNTHROID [Concomitant]
  12. ALBUTEROL [Concomitant]
  13. LASIX [Concomitant]
  14. ASPIRIN [Concomitant]
  15. LOPRESSOR [Concomitant]

REACTIONS (8)
  - URINARY TRACT INFECTION [None]
  - INTERNATIONAL NORMALISED RATIO INCREASED [None]
  - HAEMOGLOBIN DECREASED [None]
  - ACUTE MYOCARDIAL INFARCTION [None]
  - HAEMORRHAGE [None]
  - TREATMENT NONCOMPLIANCE [None]
  - ESCHERICHIA BACTERAEMIA [None]
  - COAGULOPATHY [None]
